FAERS Safety Report 6562226-0 (Version None)
Quarter: 2010Q1

REPORT INFORMATION
  Report Type: 
  Country: None (occurrence: None)
  Receive Date: 20100130
  Receipt Date: 20091103
  Transmission Date: 20100710
  Serious: No
  Sender: FDA-Public Use
  Company Number: US-ABBOTT-09P-163-0607021-00

PATIENT
  Sex: Male
  Weight: 73.548 kg

DRUGS (10)
  1. HUMIRA [Suspect]
     Indication: ANKYLOSING SPONDYLITIS
     Route: 058
     Dates: start: 20070101
  2. LISINOPRIL [Concomitant]
     Indication: HYPERTENSION
     Dosage: DAILY
  3. SIMVASTATIN [Concomitant]
     Indication: BLOOD CHOLESTEROL INCREASED
     Dosage: DAILY
  4. METHOTREXATE [Concomitant]
     Indication: ANKYLOSING SPONDYLITIS
     Dosage: 2.5MG
  5. INDOMETHACIN [Concomitant]
     Indication: ANKYLOSING SPONDYLITIS
     Dosage: DAILY
  6. OMEPRAZOLE [Concomitant]
     Indication: GASTROOESOPHAGEAL REFLUX DISEASE
     Dosage: DAILY
  7. FOLIC ACID [Concomitant]
     Indication: ANKYLOSING SPONDYLITIS
     Dosage: DAILY
  8. ASPIRIN [Concomitant]
     Indication: CARDIOVASCULAR EVENT PROPHYLAXIS
     Dosage: DAILY
  9. LORATADINE [Concomitant]
     Indication: HYPERSENSITIVITY
     Dosage: DAILY
  10. AMLODIPINE [Concomitant]
     Indication: HYPERTENSION
     Dosage: DAILY

REACTIONS (2)
  - COUGH [None]
  - NASOPHARYNGITIS [None]
